FAERS Safety Report 4319339-3 (Version None)
Quarter: 2004Q1

REPORT INFORMATION
  Report Type: 
  Country: None (occurrence: None)
  Receive Date: 20040319
  Receipt Date: 20040224
  Transmission Date: 20041129
  Serious: Yes (Other)
  Sender: FDA-Public Use
  Company Number: PHBS2004JP02612

PATIENT

DRUGS (1)
  1. LUDIOMIL [Suspect]
     Indication: DEPRESSION
     Route: 048

REACTIONS (2)
  - MANIA [None]
  - THROMBOSIS [None]
